FAERS Safety Report 23114442 (Version 1)
Quarter: 2023Q4

REPORT INFORMATION
  Report Type: Spontaneous
  Country: US (occurrence: US)
  Receive Date: 20231027
  Receipt Date: 20231027
  Transmission Date: 20240110
  Serious: No
  Sender: FDA-Public Use
  Company Number: US-002147023-NVSC2023US035133

PATIENT
  Sex: Female

DRUGS (1)
  1. TRIFLURIDINE [Suspect]
     Active Substance: TRIFLURIDINE
     Indication: Product used for unknown indication
     Dosage: 7.5 ML, 9 TIMES A DAY (LDP US)
     Route: 065
     Dates: start: 20221013

REACTIONS (5)
  - Erythema [Unknown]
  - Vision blurred [Unknown]
  - Eye swelling [Unknown]
  - Eye discharge [Unknown]
  - Eye irritation [Unknown]
